FAERS Safety Report 19578338 (Version 1)
Quarter: 2021Q3

REPORT INFORMATION
  Report Type: Report from Study
  Country: PT (occurrence: PT)
  Receive Date: 20210720
  Receipt Date: 20210720
  Transmission Date: 20211014
  Serious: Yes (Hospitalization, Other)
  Sender: FDA-Public Use
  Company Number: PT-CELLTRION INC.-2021PT009530

PATIENT

DRUGS (17)
  1. TRASTUZUMAB (UNKNOWN) [Suspect]
     Active Substance: TRASTUZUMAB
     Dosage: 6 UG/KG, EVERY 3 WEEKS
     Route: 042
     Dates: start: 20170120, end: 20170323
  2. TRASTUZUMAB (UNKNOWN) [Suspect]
     Active Substance: TRASTUZUMAB
     Dosage: 6 UG/KG, EVERY 3 WEEKS (MOST RECENT DOSE PRIOR TO THE EVENT ON10/OCT/2017)
     Route: 042
     Dates: start: 20171010, end: 20180102
  3. ZOLEDRONIC ACID [Suspect]
     Active Substance: ZOLEDRONIC ACID
     Indication: BREAST CANCER
     Dosage: 5 UG/KG, EVERY 3 WEEKS
     Route: 042
     Dates: start: 20190221
  4. OMEPRAZOL [Concomitant]
     Active Substance: OMEPRAZOLE
     Dosage: UNK
     Dates: start: 20170615
  5. DOCETAXEL. [Suspect]
     Active Substance: DOCETAXEL
     Indication: BREAST CANCER
     Dosage: 75 UG/M2, EVERY 3 WEEKS (MOST RECENT DOSE PRIOR TO THE EVENT: 23/MAR/2017 AND 04/MAY/2017)
     Route: 042
     Dates: start: 20170120
  6. TRASTUZUMAB (UNKNOWN) [Suspect]
     Active Substance: TRASTUZUMAB
     Dosage: 6 UG/KG, EVERY 3 WEEKS (MOST RECENT DOSE PRIOR TO THE EVENT 04/MAY/2017)
     Route: 042
     Dates: start: 20170504, end: 20170830
  7. TRASTUZUMAB (UNKNOWN) [Suspect]
     Active Substance: TRASTUZUMAB
     Dosage: 6 UG/KG, EVERY 3 WEEKS
     Route: 042
     Dates: start: 20180221, end: 20181218
  8. DIAZEPAM. [Concomitant]
     Active Substance: DIAZEPAM
     Dosage: UNK
     Dates: start: 20180319
  9. PIPERACILINA [Concomitant]
     Active Substance: PIPERACILLIN
     Indication: LARGE INTESTINE INFECTION
  10. CAPTOPRIL. [Concomitant]
     Active Substance: CAPTOPRIL
     Dosage: UNK
     Dates: start: 20180313, end: 20190214
  11. TRASTUZUMAB (UNKNOWN) [Suspect]
     Active Substance: TRASTUZUMAB
     Indication: BREAST CANCER
     Dosage: 6 UG/KG, EVERY 3 WEEKS
     Route: 042
     Dates: start: 20190116
  12. OLANZAPINA [Concomitant]
     Active Substance: OLANZAPINE
     Dosage: UNK
     Dates: start: 20170615, end: 20190401
  13. ZOLEDRONIC ACID [Suspect]
     Active Substance: ZOLEDRONIC ACID
     Dosage: 5 UG/KG, EVERY 3 WEEKS
     Route: 042
     Dates: start: 20180830, end: 20190116
  14. PERTUZUMAB. [Suspect]
     Active Substance: PERTUZUMAB
     Indication: BREAST CANCER
     Dosage: 420 UG, EVERY 3 WEEKS
     Route: 042
     Dates: start: 20170213, end: 20170323
  15. DEPAKINE [Concomitant]
     Active Substance: VALPROATE SODIUM
     Dosage: UNK
     Dates: start: 20180319
  16. PERTUZUMAB. [Suspect]
     Active Substance: PERTUZUMAB
     Dosage: 420 UG, EVERY 3 WEEKS (MOST RECENT DOSE PRIOR TO EVENT ON 04/MAY/2017)
     Route: 042
     Dates: start: 20170504, end: 20170731
  17. TAZOBACTAM [Concomitant]
     Active Substance: TAZOBACTAM
     Indication: LARGE INTESTINE INFECTION

REACTIONS (3)
  - Influenza [Recovered/Resolved]
  - Respiratory tract infection [Recovered/Resolved]
  - Off label use [Unknown]

NARRATIVE: CASE EVENT DATE: 20180121
